FAERS Safety Report 6829183-0 (Version None)
Quarter: 2010Q3

REPORT INFORMATION
  Report Type: 
  Country: None (occurrence: None)
  Receive Date: 20100709
  Receipt Date: 20070305
  Transmission Date: 20110219
  Serious: No
  Sender: FDA-Public Use
  Company Number: US-PFIZER INC-2007018490

PATIENT
  Sex: Female

DRUGS (17)
  1. CHANTIX [Suspect]
     Indication: SMOKING CESSATION THERAPY
     Dates: start: 20070103, end: 20070107
  2. SEROQUEL [Concomitant]
  3. ABILIFY [Concomitant]
  4. RISPERDAL [Concomitant]
  5. DEPAKOTE [Concomitant]
  6. PRILOSEC [Concomitant]
  7. ZANTAC [Concomitant]
  8. PROVERA [Concomitant]
  9. ESTRADIOL [Concomitant]
  10. MAGNESIUM [Concomitant]
  11. VITAMIN B-12 [Concomitant]
  12. VITAMIN B-12 [Concomitant]
  13. VITAMIN E [Concomitant]
  14. CENTRUM [Concomitant]
  15. CALTRATE [Concomitant]
  16. KLONOPIN [Concomitant]
     Indication: ANXIETY
  17. RESTORIL [Concomitant]
     Indication: INSOMNIA

REACTIONS (7)
  - ANXIETY [None]
  - DIARRHOEA [None]
  - DIZZINESS [None]
  - MOOD ALTERED [None]
  - NAUSEA [None]
  - NIGHTMARE [None]
  - VOMITING [None]
